FAERS Safety Report 25602849 (Version 1)
Quarter: 2025Q3

REPORT INFORMATION
  Report Type: Spontaneous
  Country: EU (occurrence: EU)
  Receive Date: 20250724
  Receipt Date: 20250724
  Transmission Date: 20251021
  Serious: Yes (Hospitalization)
  Sender: PFIZER
  Company Number: EU-Accord-495055

PATIENT
  Age: 70 Year

DRUGS (3)
  1. DOCETAXEL [Suspect]
     Active Substance: DOCETAXEL
     Dates: start: 20250407
  2. CISPLATIN [Suspect]
     Active Substance: CISPLATIN
     Dates: start: 20250407
  3. CETUXIMAB [Suspect]
     Active Substance: CETUXIMAB
     Dates: start: 20250407

REACTIONS (1)
  - Post procedural haemorrhage [Recovered/Resolved]

NARRATIVE: CASE EVENT DATE: 20250414
